FAERS Safety Report 10293375 (Version 3)
Quarter: 2014Q3

REPORT INFORMATION
  Report Type: Spontaneous
  Country: FR (occurrence: FR)
  Receive Date: 20140710
  Receipt Date: 20140728
  Transmission Date: 20150326
  Serious: Yes (Other)
  Sender: FDA-Public Use
  Company Number: FR-VIIV HEALTHCARE LIMITED-B1010607A

PATIENT
  Age: 62 Year
  Sex: Male

DRUGS (4)
  1. REYATAZ [Concomitant]
     Active Substance: ATAZANAVIR SULFATE
     Indication: HIV INFECTION
     Route: 065
     Dates: end: 201405
  2. TRUVADA [Concomitant]
     Active Substance: EMTRICITABINE\TENOFOVIR DISOPROXIL FUMARATE
     Indication: HIV INFECTION
     Route: 065
  3. TIVICAY [Suspect]
     Active Substance: DOLUTEGRAVIR SODIUM
     Indication: HIV INFECTION
     Dosage: 50MG PER DAY
     Route: 048
     Dates: start: 20140506
  4. NORVIR [Concomitant]
     Active Substance: RITONAVIR
     Indication: HIV INFECTION
     Route: 065
     Dates: end: 201405

REACTIONS (7)
  - Suicidal ideation [Not Recovered/Not Resolved]
  - Depressive symptom [Not Recovered/Not Resolved]
  - Nightmare [Not Recovered/Not Resolved]
  - Emotional disorder [Not Recovered/Not Resolved]
  - Headache [Recovering/Resolving]
  - Asthenia [Not Recovered/Not Resolved]
  - Insomnia [Not Recovered/Not Resolved]

NARRATIVE: CASE EVENT DATE: 201405
